FAERS Safety Report 22071948 (Version 1)
Quarter: 2023Q1

REPORT INFORMATION
  Report Type: Spontaneous
  Country: US (occurrence: US)
  Receive Date: 20230308
  Receipt Date: 20230308
  Transmission Date: 20230417
  Serious: No
  Sender: FDA-Public Use
  Company Number: US-EIGER BIOPHARMACEUTICALS-EIG-2022-000020

PATIENT
  Sex: Male

DRUGS (1)
  1. ZOKINVY [Suspect]
     Active Substance: LONAFARNIB
     Indication: Progeria
     Dosage: 50 MILLIGRAM, BID
     Route: 048
     Dates: start: 202101

REACTIONS (1)
  - Diarrhoea [Unknown]
